FAERS Safety Report 9786542 (Version 1)
Quarter: 2013Q4

REPORT INFORMATION
  Report Type: Report from Study
  Country: DO (occurrence: DO)
  Receive Date: 20131227
  Receipt Date: 20131227
  Transmission Date: 20140711
  Serious: Yes (Death, Hospitalization)
  Sender: FDA-Public Use
  Company Number: DO-NOVOPROD-396396

PATIENT
  Age: 64 Year
  Sex: Female

DRUGS (1)
  1. INSULIN DETEMIR FLEXPEN [Suspect]
     Indication: PRODUCT USED FOR UNKNOWN INDICATION
     Dosage: 10 IU, QD
     Route: 058
     Dates: start: 20130930

REACTIONS (3)
  - Blood glucose increased [Fatal]
  - Nephrolithiasis [Fatal]
  - Blood pressure increased [Fatal]
